FAERS Safety Report 22141166 (Version 1)
Quarter: 2023Q1

REPORT INFORMATION
  Report Type: Spontaneous
  Country: DE (occurrence: DE)
  Receive Date: 20230327
  Receipt Date: 20230327
  Transmission Date: 20230417
  Serious: Yes (Other)
  Sender: FDA-Public Use
  Company Number: None

PATIENT
  Age: 38 Year
  Sex: Female
  Weight: 70 kg

DRUGS (1)
  1. CYTOTEC [Suspect]
     Active Substance: MISOPROSTOL
     Indication: Labour induction
     Dosage: 150 MCG 3X 50 MCG1X 50 MCG, 2 HOURS LATER 100 MCG

REACTIONS (5)
  - Hallucination, visual [Recovered/Resolved]
  - Abnormal labour [Recovered/Resolved]
  - Labour pain [Recovered/Resolved]
  - Arrested labour [Recovered/Resolved]
  - Off label use [Unknown]

NARRATIVE: CASE EVENT DATE: 20171211
